FAERS Safety Report 11468655 (Version 1)
Quarter: 2015Q3

REPORT INFORMATION
  Report Type: Spontaneous
  Country: US (occurrence: None)
  Receive Date: 20150904
  Receipt Date: 20150904
  Transmission Date: 20151125
  Serious: Yes (Life-Threatening, Hospitalization)
  Sender: FDA-Public Use
  Company Number: None

PATIENT
  Age: 2 Month
  Sex: Male
  Weight: 83.92 kg

DRUGS (9)
  1. FEOSOL BIFERA IRON SUPPLEMENT [Concomitant]
  2. CLONAZEPAM. [Concomitant]
     Active Substance: CLONAZEPAM
  3. GLYCOSAMINE [Concomitant]
  4. PRAMIPEXOLE 0.125 MG GLENMARK PHARMACEUTICALS [Suspect]
     Active Substance: PRAMIPEXOLE
     Indication: RESTLESS LEGS SYNDROME
     Dosage: 1/2 PILL, TAKEN BY MOUTH
     Dates: start: 20150710, end: 20150716
  5. MIRAPEX [Concomitant]
     Active Substance: PRAMIPEXOLE DIHYDROCHLORIDE
  6. PANTOPRAZOLE [Concomitant]
     Active Substance: PANTOPRAZOLE SODIUM
  7. TAMSULOSIN [Concomitant]
     Active Substance: TAMSULOSIN
  8. MULTIVITAMIN/MULTIMINERAL WITH IRON [Concomitant]
  9. ALBUTEROL SULFATE. [Concomitant]
     Active Substance: ALBUTEROL SULFATE

REACTIONS (8)
  - Abdominal pain upper [None]
  - Product substitution issue [None]
  - Abdominal pain [None]
  - Muscle spasms [None]
  - Gastrooesophageal reflux disease [None]
  - Duodenal ulcer haemorrhage [None]
  - Syncope [None]
  - Hypersensitivity [None]

NARRATIVE: CASE EVENT DATE: 20150726
